FAERS Safety Report 4941485-1 (Version None)
Quarter: 2006Q1

REPORT INFORMATION
  Report Type: 
  Country: None (occurrence: None)
  Receive Date: 20060308
  Receipt Date: 20060207
  Transmission Date: 20060701
  Serious: Yes (Other)
  Sender: FDA-Public Use
  Company Number: 2006022814

PATIENT
  Age: 73 Year
  Sex: Male

DRUGS (9)
  1. VIAGRA [Suspect]
     Indication: ILL-DEFINED DISORDER
     Dosage: 50 MG (, AS NECESSARY), ORAL
     Route: 048
  2. BLOPRESS (CANDESARTAN CILEXETIL) [Concomitant]
  3. RABEPRAZOLE SODIUM [Concomitant]
  4. AMLODIPINE [Concomitant]
  5. ALFAROL (ALFACALCIDOL) [Concomitant]
  6. PERSTANTIN (DIPYRIDAMOLE) [Concomitant]
  7. PRAVASTATIN [Concomitant]
  8. DEPAS (ETIZOLAM) [Concomitant]
  9. LENDORM [Concomitant]

REACTIONS (1)
  - RASH [None]
